FAERS Safety Report 20787122 (Version 8)
Quarter: 2022Q4

REPORT INFORMATION
  Report Type: Report from Study
  Country: US (occurrence: US)
  Receive Date: 20220505
  Receipt Date: 20221017
  Transmission Date: 20230112
  Serious: No
  Sender: FDA-Public Use
  Company Number: US-NOVARTISTESTPH-NVSC2022US103144

PATIENT
  Sex: Female

DRUGS (4)
  1. ENTRESTO [Suspect]
     Active Substance: SACUBITRIL\VALSARTAN
     Indication: Product used for unknown indication
     Dosage: 1 DOSAGE FORM, BID
     Route: 048
  2. ENTRESTO [Suspect]
     Active Substance: SACUBITRIL\VALSARTAN
     Dosage: UNK
     Route: 048
  3. FUROSEMIDE [Suspect]
     Active Substance: FUROSEMIDE
     Indication: Product used for unknown indication
     Dosage: 20 MG, QD
     Route: 048
  4. POTASSIUM [Concomitant]
     Active Substance: POTASSIUM
     Indication: Product used for unknown indication
     Dosage: UNK
     Route: 065

REACTIONS (13)
  - Dyspnoea [Unknown]
  - Insomnia [Unknown]
  - Productive cough [Unknown]
  - Gait disturbance [Unknown]
  - Mobility decreased [Unknown]
  - Hepatic enzyme increased [Unknown]
  - Fluid retention [Unknown]
  - Visual impairment [Unknown]
  - Chest discomfort [Unknown]
  - Fatigue [Unknown]
  - Hypersomnia [Recovering/Resolving]
  - COVID-19 [Recovering/Resolving]
  - Product dose omission issue [Unknown]
